FAERS Safety Report 7470864-6 (Version None)
Quarter: 2011Q2

REPORT INFORMATION
  Report Type: 
  Country: None (occurrence: None)
  Receive Date: 20110510
  Receipt Date: 20110503
  Transmission Date: 20111010
  Serious: Yes (Other)
  Sender: FDA-Public Use
  Company Number: US-PFIZER INC-2011095353

PATIENT
  Sex: Female
  Weight: 70.295 kg

DRUGS (2)
  1. LIPITOR [Suspect]
     Dosage: 10 MG, ONCE A WEEK
  2. LIPITOR [Suspect]
     Indication: BLOOD CHOLESTEROL INCREASED
     Dosage: 10 MG, THREE TIMES A WEEK
     Route: 048
     Dates: start: 20100101, end: 20100401

REACTIONS (1)
  - PETECHIAE [None]
